FAERS Safety Report 8167366-0 (Version None)
Quarter: 2012Q1

REPORT INFORMATION
  Report Type: 
  Country: None (occurrence: None)
  Receive Date: 20120227
  Receipt Date: 20120223
  Transmission Date: 20120608
  Serious: No
  Sender: FDA-Public Use
  Company Number: US-B.I. PHARMACEUTICALS,INC./RIDGEFIELD-2012-BP-03557BP

PATIENT
  Sex: Male

DRUGS (9)
  1. PREDNISONE [Suspect]
     Indication: SINUSITIS
     Route: 048
     Dates: start: 20120201, end: 20120219
  2. DIOVAN HCT [Concomitant]
     Indication: HYPERTENSION
     Route: 048
  3. PRAVASTATIN [Concomitant]
     Indication: HYPERTENSION
     Dosage: 80 MG
     Route: 048
  4. VICTOZA [Concomitant]
     Indication: TYPE 2 DIABETES MELLITUS
     Route: 058
     Dates: end: 20120201
  5. VALTURNA [Concomitant]
     Indication: HYPERTENSION
     Route: 048
     Dates: start: 20120222
  6. NEXIUM [Concomitant]
     Indication: GASTROOESOPHAGEAL REFLUX DISEASE
     Route: 048
  7. FLONASE [Concomitant]
     Indication: SINUS DISORDER
     Dates: start: 20120101, end: 20120222
  8. PATANASE [Concomitant]
     Indication: SINUS DISORDER
     Dates: start: 20120101, end: 20120222
  9. TRADJENTA [Suspect]
     Indication: TYPE 2 DIABETES MELLITUS
     Dosage: 5 MG
     Route: 048
     Dates: start: 20120201, end: 20120223

REACTIONS (2)
  - BLOOD PRESSURE INCREASED [None]
  - FLUSHING [None]
